FAERS Safety Report 10635763 (Version 1)
Quarter: 2014Q4

REPORT INFORMATION
  Report Type: Spontaneous
  Country: JP (occurrence: JP)
  Receive Date: 20141205
  Receipt Date: 20141205
  Transmission Date: 20150529
  Serious: Yes (Congenital Anomaly, Other)
  Sender: FDA-Public Use
  Company Number: JP-ELI_LILLY_AND_COMPANY-JP201411011415

PATIENT
  Age: 60 Year
  Sex: Male

DRUGS (4)
  1. STRATTERA [Suspect]
     Active Substance: ATOMOXETINE HYDROCHLORIDE
     Indication: PRODUCT USED FOR UNKNOWN INDICATION
     Dosage: 20 MG, DAILY
     Route: 048
  2. STRATTERA [Interacting]
     Active Substance: ATOMOXETINE HYDROCHLORIDE
     Dosage: 100 MG, DAILY
     Route: 048
  3. LYRICA [Interacting]
     Active Substance: PREGABALIN
     Indication: SPINAL CORD INJURY
  4. STRATTERA [Interacting]
     Active Substance: ATOMOXETINE HYDROCHLORIDE
     Dosage: 70 MG, DAILY
     Route: 048

REACTIONS (6)
  - Drug interaction [Unknown]
  - Depressed level of consciousness [Unknown]
  - Somnolence [Unknown]
  - Loss of consciousness [Unknown]
  - Eye injury [Unknown]
  - Dizziness [Unknown]
